FAERS Safety Report 15663312 (Version 1)
Quarter: 2018Q4

REPORT INFORMATION
  Report Type: Report from Study
  Country: None (occurrence: US)
  Receive Date: 20181128
  Receipt Date: 20181128
  Transmission Date: 20190205
  Serious: Yes (Hospitalization, Other)
  Sender: FDA-Public Use
  Company Number: US-ABBVIE-18K-163-2557443-00

PATIENT
  Age: 61 Year
  Sex: Female
  Weight: 83.99 kg

DRUGS (27)
  1. ASPIRIN. [Concomitant]
     Active Substance: ASPIRIN
     Indication: CARDIAC DISORDER
  2. MUCINEX DM [Concomitant]
     Active Substance: DEXTROMETHORPHAN HYDROBROMIDE\GUAIFENESIN
     Indication: SINUS DISORDER
  3. CURAMED [Concomitant]
     Indication: NEOPLASM PROPHYLAXIS
  4. HUMIRA [Suspect]
     Active Substance: ADALIMUMAB
     Indication: RHEUMATOID ARTHRITIS
     Route: 058
     Dates: start: 201803, end: 20180808
  5. ESTRADIOL TRANSDERMAL SYSTEM [Concomitant]
     Active Substance: ESTRADIOL
     Indication: HORMONE REPLACEMENT THERAPY
     Route: 062
  6. ROSUVASTATIN. [Concomitant]
     Active Substance: ROSUVASTATIN
     Indication: PRODUCT USED FOR UNKNOWN INDICATION
  7. AZELASTINE HCL [Concomitant]
     Active Substance: AZELASTINE HYDROCHLORIDE
     Indication: SINUS DISORDER
     Route: 045
  8. FLEXERIL [Concomitant]
     Active Substance: CYCLOBENZAPRINE HYDROCHLORIDE
     Indication: MUSCLE RELAXANT THERAPY
  9. FOLIC ACID. [Concomitant]
     Active Substance: FOLIC ACID
     Indication: RHEUMATOID ARTHRITIS
  10. GABAPENTIN. [Concomitant]
     Active Substance: GABAPENTIN
     Indication: NEURALGIA
  11. KRILL OIL [Concomitant]
     Active Substance: DIETARY SUPPLEMENT
     Indication: BLOOD CHOLESTEROL
  12. NATURE-THROID [Concomitant]
     Active Substance: THYROID, PORCINE
     Indication: HYPOTHYROIDISM
  13. METHOTREXATE. [Concomitant]
     Active Substance: METHOTREXATE
     Indication: RHEUMATOID ARTHRITIS
  14. DOCUSATE SODIUM + SENNA [Concomitant]
     Active Substance: DOCUSATE SODIUM\SENNOSIDE A\SENNOSIDE B
     Indication: CONSTIPATION PROPHYLAXIS
  15. ESTER-C [Concomitant]
     Active Substance: CALCIUM\VITAMINS
     Indication: IMMUNE ENHANCEMENT THERAPY
  16. ATORVASTATIN [Concomitant]
     Active Substance: ATORVASTATIN
     Indication: BLOOD CHOLESTEROL
  17. BUPROPION. [Concomitant]
     Active Substance: BUPROPION
     Indication: ANXIETY
  18. HUMIRA [Suspect]
     Active Substance: ADALIMUMAB
     Route: 058
     Dates: start: 201809, end: 20181031
  19. OMEPRAZOLE. [Concomitant]
     Active Substance: OMEPRAZOLE
     Indication: GASTROOESOPHAGEAL REFLUX DISEASE
  20. MONTELUKAST SODIUM. [Concomitant]
     Active Substance: MONTELUKAST SODIUM
     Indication: SINUS DISORDER
  21. ALLEGRA-D [Concomitant]
     Active Substance: FEXOFENADINE\PSEUDOEPHEDRINE
     Indication: SINUS DISORDER
  22. VITAMIN D3 [Concomitant]
     Active Substance: CHOLECALCIFEROL
     Indication: VITAMIN D DECREASED
  23. DICLOFENAC [Concomitant]
     Active Substance: DICLOFENAC
     Indication: RHEUMATOID ARTHRITIS
  24. DOCUSATE SODIUM + SENNA [Concomitant]
     Active Substance: DOCUSATE SODIUM\SENNOSIDE A\SENNOSIDE B
     Indication: LAXATIVE SUPPORTIVE CARE
  25. CALCIUM MAGNESIUM ZINC [Concomitant]
     Active Substance: CALCIUM\MAGNESIUM\ZINC
     Indication: BONE DISORDER
  26. HYDROCODONE [Concomitant]
     Active Substance: HYDROCODONE
     Indication: PAIN
  27. PROGESTERONE. [Concomitant]
     Active Substance: PROGESTERONE
     Indication: HORMONE REPLACEMENT THERAPY

REACTIONS (3)
  - Tooth abscess [Recovered/Resolved]
  - Osteoarthritis [Recovered/Resolved]
  - Pain [Recovered/Resolved]

NARRATIVE: CASE EVENT DATE: 2018
